FAERS Safety Report 11700705 (Version 1)
Quarter: 2015Q4

REPORT INFORMATION
  Report Type: Spontaneous
  Country: US (occurrence: US)
  Receive Date: 20151105
  Receipt Date: 20151105
  Transmission Date: 20160304
  Serious: Yes (Other)
  Sender: FDA-Public Use
  Company Number: US-SA-2015SA176362

PATIENT
  Age: 39 Year
  Sex: Male

DRUGS (1)
  1. FABRAZYME [Suspect]
     Active Substance: AGALSIDASE BETA
     Indication: RENAL TRANSPLANT
     Route: 041
     Dates: start: 20140203

REACTIONS (4)
  - Lung infection [Unknown]
  - Cough [Recovering/Resolving]
  - Off label use [Unknown]
  - Pulmonary fibrosis [Unknown]

NARRATIVE: CASE EVENT DATE: 20140203
